FAERS Safety Report 8183021-5 (Version None)
Quarter: 2012Q1

REPORT INFORMATION
  Report Type: 
  Country: None (occurrence: None)
  Receive Date: 20120201
  Receipt Date: 20110516
  Transmission Date: 20120608
  Serious: Yes (Other)
  Sender: FDA-Public Use
  Company Number: 281938USA

PATIENT
  Sex: Female

DRUGS (2)
  1. PROPOXYPHENE NAPSYLATE W/ACETAMINOPHENE 100MG/ 650MG, TABLETS (PROPOXY [Suspect]
  2. PROPACET [Suspect]

REACTIONS (1)
  - MYOCARDIAL INFARCTION [None]
